FAERS Safety Report 6866709-5 (Version None)
Quarter: 2010Q3

REPORT INFORMATION
  Report Type: 
  Country: None (occurrence: None)
  Receive Date: 20100722
  Receipt Date: 20100714
  Transmission Date: 20110219
  Serious: Yes (Other)
  Sender: FDA-Public Use
  Company Number: CN-PFIZER INC-2010087853

PATIENT
  Age: 23 Year
  Sex: Male

DRUGS (13)
  1. CELECOXIB [Suspect]
     Indication: ANALGESIC THERAPY
     Dosage: 0.2 G/DAY FOR 1 MO
     Route: 048
  2. INDOMETHACIN [Suspect]
     Indication: HEADACHE
     Dosage: 50 MG-100MG DAILY FOR HALF YEAR
     Route: 048
  3. ACECLOFENAC [Suspect]
     Indication: HEADACHE
     Dosage: 200-400MG DAILY FOR 1.5 YEARS
     Route: 048
  4. ISONIAZID [Concomitant]
     Dosage: 0.9 G/DAY
     Route: 042
  5. RIFAMPICIN [Concomitant]
     Dosage: 1 G/DAY
     Route: 042
  6. PYRAZINAMIDE [Concomitant]
     Dosage: 1.5 G/DAY
     Route: 048
  7. ETHAMBUTOL [Concomitant]
     Dosage: 0.75 G/DAY
     Route: 048
  8. DEXAMETHASONE [Concomitant]
     Dosage: 15 MG/DAY FOR 3 WKS
     Route: 042
  9. DEXAMETHASONE [Concomitant]
     Dosage: 5 MG PER 10 DAYS
     Route: 042
  10. PREDNISONE [Concomitant]
     Dosage: 30 MG/DAY
     Route: 048
  11. MANNITOL [Concomitant]
     Dosage: 150 G/DAY
     Route: 042
  12. VITAMIN B1 TAB [Concomitant]
     Dosage: 0.1 G/DAY
     Route: 030
  13. VITAMIN B-12 [Concomitant]
     Dosage: 500 UG/DAY
     Route: 030

REACTIONS (1)
  - PACHYMENINGITIS [None]
